FAERS Safety Report 4403175-3 (Version None)
Quarter: 2004Q3

REPORT INFORMATION
  Report Type: 
  Country: None (occurrence: None)
  Receive Date: 20040721
  Receipt Date: 20040528
  Transmission Date: 20050211
  Serious: No
  Sender: FDA-Public Use
  Company Number: US-GLAXOSMITHKLINE-A0512627A

PATIENT
  Age: 48 Year
  Sex: Female

DRUGS (8)
  1. IMITREX [Suspect]
     Indication: MIGRAINE
     Dosage: 50MG AS REQUIRED
     Route: 048
  2. IMITREX [Suspect]
  3. ESTROGEN PATCH [Concomitant]
  4. BEXTRA [Concomitant]
  5. CONCERTA [Concomitant]
  6. OMEPRAZOLE [Concomitant]
  7. ESGIC [Concomitant]
  8. ULTRAM [Concomitant]

REACTIONS (3)
  - DRUG INEFFECTIVE [None]
  - FLATULENCE [None]
  - NAUSEA [None]
